FAERS Safety Report 9443624 (Version 2)
Quarter: 2013Q3

REPORT INFORMATION
  Report Type: Spontaneous
  Country: US (occurrence: US)
  Receive Date: 20130806
  Receipt Date: 20130828
  Transmission Date: 20140515
  Serious: Yes (Other)
  Sender: FDA-Public Use
  Company Number: CHPA2013US012257

PATIENT
  Age: 71 Year
  Sex: Female

DRUGS (2)
  1. GAS-X CHEWABLE TABLETS PEPPERMINT CREME [Suspect]
     Indication: ABDOMINAL DISTENSION
     Dosage: 1 DF, QD
     Route: 048
     Dates: start: 201306, end: 20130731
  2. GAS-X CHEWABLE TABLETS PEPPERMINT CREME [Suspect]
     Indication: FLATULENCE

REACTIONS (3)
  - Gastrointestinal inflammation [Recovered/Resolved]
  - Gastric mucosa erythema [Recovered/Resolved]
  - Large intestinal haemorrhage [Recovered/Resolved]
